FAERS Safety Report 18652040 (Version 4)
Quarter: 2021Q1

REPORT INFORMATION
  Report Type: Spontaneous
  Country: CH (occurrence: CH)
  Receive Date: 20201223
  Receipt Date: 20210208
  Transmission Date: 20210419
  Serious: No
  Sender: FDA-Public Use
  Company Number: CH-JNJFOC-20201222077

PATIENT
  Age: 5 Decade

DRUGS (13)
  1. DUROGESIC MATRIX [Suspect]
     Active Substance: FENTANYL
  2. DUROGESIC MATRIX [Suspect]
     Active Substance: FENTANYL
  3. ZOFRAN [Concomitant]
     Active Substance: ONDANSETRON HYDROCHLORIDE
     Route: 065
  4. DUROGESIC MATRIX [Suspect]
     Active Substance: FENTANYL
  5. DUROGESIC MATRIX [Suspect]
     Active Substance: FENTANYL
  6. DUROGESIC MATRIX [Suspect]
     Active Substance: FENTANYL
  7. DUROGESIC MATRIX [Suspect]
     Active Substance: FENTANYL
  8. DUROGESIC MATRIX [Suspect]
     Active Substance: FENTANYL
     Indication: PAIN
     Dosage: STRENGTH: 25.00 MCG/HR
     Route: 062
  9. DUROGESIC MATRIX [Suspect]
     Active Substance: FENTANYL
  10. DUROGESIC MATRIX [Suspect]
     Active Substance: FENTANYL
  11. DUROGESIC MATRIX [Suspect]
     Active Substance: FENTANYL
  12. DUROGESIC MATRIX [Suspect]
     Active Substance: FENTANYL
     Indication: PAIN
     Dosage: STRENGTH: 50.00 MCG/HR
     Route: 062
     Dates: start: 20181228
  13. DUROGESIC MATRIX [Suspect]
     Active Substance: FENTANYL

REACTIONS (3)
  - Product dose omission issue [Unknown]
  - Product adhesion issue [Unknown]
  - Product adhesion issue [Unknown]

NARRATIVE: CASE EVENT DATE: 202011
